FAERS Safety Report 17380543 (Version 5)
Quarter: 2020Q1

REPORT INFORMATION
  Report Type: Report from Study
  Country: US (occurrence: US)
  Receive Date: 20200206
  Receipt Date: 20200331
  Transmission Date: 20200409
  Serious: Yes (Other)
  Sender: FDA-Public Use
  Company Number: NVSC2020US031549

PATIENT
  Sex: Male

DRUGS (2)
  1. ENTRESTO [Suspect]
     Active Substance: SACUBITRIL\VALSARTAN
     Indication: CARDIAC FAILURE CHRONIC
     Dosage: 200 MG, BID (97 MG SACUBITRIL/ 103 MG VALSARTAN)
     Route: 048
     Dates: start: 20191209
  2. ENTRESTO [Suspect]
     Active Substance: SACUBITRIL\VALSARTAN
     Indication: CARDIAC FAILURE

REACTIONS (4)
  - Drug ineffective [Not Recovered/Not Resolved]
  - Renal impairment [Recovered/Resolved]
  - Blood potassium increased [Recovered/Resolved]
  - Dehydration [Recovered/Resolved]
